FAERS Safety Report 20652812 (Version 1)
Quarter: 2022Q1

REPORT INFORMATION
  Report Type: Report from Study
  Country: IT (occurrence: IT)
  Receive Date: 20220330
  Receipt Date: 20220330
  Transmission Date: 20220423
  Serious: Yes (Other)
  Sender: FDA-Public Use
  Company Number: IT-ABBVIE-22K-083-4335082-00

PATIENT
  Age: 75 Year
  Sex: Male

DRUGS (2)
  1. CARBIDOPA\LEVODOPA [Suspect]
     Active Substance: CARBIDOPA\LEVODOPA
     Indication: Parkinson^s disease
     Dosage: DAILY DOSE: 1010 MG ; PUMP SETTING: MD: 6+3,  CR: 2,7 (15H), ED: 2
     Route: 050
     Dates: start: 20200707
  2. CARBIDOPA\LEVODOPA [Suspect]
     Active Substance: CARBIDOPA\LEVODOPA

REACTIONS (4)
  - Gastric ulcer [Unknown]
  - Jejunal ulcer [Unknown]
  - Duodenal ulcer [Unknown]
  - Fistula of small intestine [Unknown]

NARRATIVE: CASE EVENT DATE: 20220207
